FAERS Safety Report 20608168 (Version 1)
Quarter: 2022Q1

REPORT INFORMATION
  Report Type: Spontaneous
  Country: US (occurrence: US)
  Receive Date: 20220317
  Receipt Date: 20220317
  Transmission Date: 20220423
  Serious: Yes (Death, Other)
  Sender: FDA-Public Use
  Company Number: US-SA-SAC20220315001646

PATIENT
  Age: 60 Year
  Sex: Male

DRUGS (1)
  1. ZANTAC [Suspect]
     Active Substance: RANITIDINE HYDROCHLORIDE
     Indication: Gastrooesophageal reflux disease
     Dosage: UNK UNK, QW
     Dates: start: 199201, end: 200512

REACTIONS (2)
  - Oesophageal carcinoma [Fatal]
  - Neoplasm malignant [Fatal]

NARRATIVE: CASE EVENT DATE: 20191013
